FAERS Safety Report 25568150 (Version 1)
Quarter: 2025Q3

REPORT INFORMATION
  Report Type: Spontaneous
  Country: US (occurrence: US)
  Receive Date: 20250716
  Receipt Date: 20250716
  Transmission Date: 20251021
  Serious: No
  Sender: GALPHARM INTERNATIONAL
  Company Number: US-PERRIGO-24US005861

PATIENT
  Sex: Male
  Weight: 81.633 kg

DRUGS (3)
  1. MINOXIDIL [Suspect]
     Active Substance: MINOXIDIL
     Indication: Alopecia
     Dosage: 2 ML, QD
     Route: 061
     Dates: start: 2014, end: 20240616
  2. MINOXIDIL [Suspect]
     Active Substance: MINOXIDIL
     Dosage: UNKNOWN, 5 TO 10 TIMES
     Route: 047
  3. MINOXIDIL [Suspect]
     Active Substance: MINOXIDIL
     Dosage: 2 ML, QD
     Route: 061
     Dates: start: 20240617, end: 20240617

REACTIONS (6)
  - Eye irritation [Recovered/Resolved]
  - Accidental exposure to product [Unknown]
  - Expired product administered [Unknown]
  - Inappropriate schedule of product administration [Unknown]
  - Incorrect dose administered [Unknown]
  - Accidental exposure to product [Unknown]

NARRATIVE: CASE EVENT DATE: 20140101
